FAERS Safety Report 7819803-6 (Version None)
Quarter: 2011Q4

REPORT INFORMATION
  Report Type: 
  Country: None (occurrence: None)
  Receive Date: 20111018
  Receipt Date: 20100927
  Transmission Date: 20120403
  Serious: No
  Sender: FDA-Public Use
  Company Number: US-ASTRAZENECA-2010SE45464

PATIENT
  Age: 58 Year
  Sex: Female
  Weight: 52.6 kg

DRUGS (4)
  1. SYMBICORT [Suspect]
     Dosage: 160/4.5 MCG ONE PUFF TWO TIMES A DAY
     Route: 055
     Dates: start: 20100901
  2. ASMANEX TWISTHALER [Concomitant]
  3. VITAMIN TAB [Concomitant]
  4. SYMBICORT [Suspect]
     Dosage: 160/4.5 MCG TWO TO FOUR PUFFS DAILY
     Route: 055
     Dates: end: 20100920

REACTIONS (4)
  - TACHYCARDIA [None]
  - CHEST DISCOMFORT [None]
  - VENTRICULAR ARRHYTHMIA [None]
  - TREATMENT NONCOMPLIANCE [None]
